FAERS Safety Report 8790092 (Version 3)
Quarter: 2013Q2

REPORT INFORMATION
  Report Type: Spontaneous
  Country: US (occurrence: US)
  Receive Date: 20120917
  Receipt Date: 20130412
  Transmission Date: 20140414
  Serious: Yes (Hospitalization)
  Sender: FDA-Public Use
  Company Number: US-BAYER-2012-096169

PATIENT
  Age: 32 Year
  Sex: Female
  Weight: 129.25 kg

DRUGS (3)
  1. YAZ [Suspect]
  2. YASMIN [Suspect]
  3. TRAMADOL [Concomitant]

REACTIONS (2)
  - Deep vein thrombosis [Recovered/Resolved]
  - Embolism venous [None]
